FAERS Safety Report 23170463 (Version 1)
Quarter: 2023Q4

REPORT INFORMATION
  Report Type: Spontaneous
  Country: JP (occurrence: JP)
  Receive Date: 20231110
  Receipt Date: 20231110
  Transmission Date: 20240109
  Serious: Yes (Other)
  Sender: FDA-Public Use
  Company Number: JP-AMGEN-JPNSP2023097146

PATIENT
  Age: 24 Year
  Sex: Male

DRUGS (10)
  1. BLINCYTO [Suspect]
     Active Substance: BLINATUMOMAB
     Indication: B precursor type acute leukaemia
     Dosage: 9 MICROGRAM, QD, IV DRIP INFUSION
     Route: 042
     Dates: start: 20230601, end: 202306
  2. BLINCYTO [Suspect]
     Active Substance: BLINATUMOMAB
     Dosage: 9 MICROGRAM, QD, IV DRIP INFUSION
     Route: 042
     Dates: start: 20230612, end: 202306
  3. BLINCYTO [Suspect]
     Active Substance: BLINATUMOMAB
     Dosage: 9 MICROGRAM, QD, IV DRIP INFUSION
     Route: 042
     Dates: start: 20230614, end: 2023
  4. BLINCYTO [Suspect]
     Active Substance: BLINATUMOMAB
     Dosage: 28 MICROGRAM, QD, IV DRIP INFUSION
     Route: 042
     Dates: start: 2023, end: 2023
  5. BLINCYTO [Suspect]
     Active Substance: BLINATUMOMAB
     Dosage: 28 MICROGRAM, QD, IV DRIP INFUSION
     Route: 042
     Dates: start: 20230630, end: 20230710
  6. LANSOPRAZOLE [Concomitant]
     Active Substance: LANSOPRAZOLE
  7. SULFAMETHOXAZOLE\TRIMETHOPRIM [Concomitant]
     Active Substance: SULFAMETHOXAZOLE\TRIMETHOPRIM
  8. FLUCONAZOLE [Concomitant]
     Active Substance: FLUCONAZOLE
  9. ACYCLOVIR [Concomitant]
     Active Substance: ACYCLOVIR
  10. MEROPENEM [Concomitant]
     Active Substance: MEROPENEM

REACTIONS (3)
  - Cytokine release syndrome [Not Recovered/Not Resolved]
  - CSF lymphocyte count increased [Unknown]
  - Pneumonia [Not Recovered/Not Resolved]

NARRATIVE: CASE EVENT DATE: 20230601
